FAERS Safety Report 12829873 (Version 1)
Quarter: 2016Q4

REPORT INFORMATION
  Report Type: Spontaneous
  Country: US (occurrence: US)
  Receive Date: 20161007
  Receipt Date: 20161007
  Transmission Date: 20170207
  Serious: No
  Sender: FDA-Public Use
  Company Number: US-SA-2016SA077369

PATIENT
  Age: 55 Year
  Sex: Female

DRUGS (7)
  1. VENTOLIN [Concomitant]
     Active Substance: ALBUTEROL SULFATE
  2. VITAMIN D [Concomitant]
     Active Substance: CHOLECALCIFEROL
  3. AUBAGIO [Suspect]
     Active Substance: TERIFLUNOMIDE
     Indication: MULTIPLE SCLEROSIS
     Route: 048
  4. LOTREL [Concomitant]
     Active Substance: AMLODIPINE BESYLATE\BENAZEPRIL HYDROCHLORIDE
  5. MOTRIN [Concomitant]
     Active Substance: IBUPROFEN
  6. LEVOTHYROXINE SODIUM. [Concomitant]
     Active Substance: LEVOTHYROXINE SODIUM
  7. SINGULAIR [Concomitant]
     Active Substance: MONTELUKAST SODIUM

REACTIONS (8)
  - Depression [Unknown]
  - Asthma [Unknown]
  - Decreased appetite [Unknown]
  - Muscle spasms [Unknown]
  - Chronic obstructive pulmonary disease [Unknown]
  - Ligament sprain [Unknown]
  - Myalgia [Unknown]
  - Fall [Unknown]

NARRATIVE: CASE EVENT DATE: 20160315
